FAERS Safety Report 14527117 (Version 1)
Quarter: 2018Q1

REPORT INFORMATION
  Report Type: Spontaneous
  Country: US (occurrence: US)
  Receive Date: 20180212
  Receipt Date: 20180212
  Transmission Date: 20180509
  Serious: Yes (Hospitalization)
  Sender: FDA-Public Use
  Company Number: None

PATIENT
  Age: 16 Year
  Sex: Female

DRUGS (5)
  1. PROBIOTICS [Concomitant]
     Active Substance: PROBIOTICS NOS
  2. MIRALAX [Suspect]
     Active Substance: POLYETHYLENE GLYCOL 3350
     Indication: COLONOSCOPY
     Dosage: ?          QUANTITY:1 CAPFUL;?
     Route: 048
  3. APAP [Concomitant]
     Active Substance: ACETAMINOPHEN
  4. LORENA [Concomitant]
  5. OMEPRAZOLE. [Concomitant]
     Active Substance: OMEPRAZOLE

REACTIONS (11)
  - Dyspnoea [None]
  - Palpitations [None]
  - Constipation [None]
  - Miliaria [None]
  - Micturition urgency [None]
  - Pain in extremity [None]
  - Urticaria [None]
  - Swollen tongue [None]
  - Vomiting [None]
  - Abdominal pain [None]
  - Dizziness [None]

NARRATIVE: CASE EVENT DATE: 20180208
